FAERS Safety Report 9518254 (Version 1)
Quarter: 2013Q1

REPORT INFORMATION
  Report Type: Spontaneous
  Country: US (occurrence: None)
  Receive Date: 20130305
  Receipt Date: 20130305
  Transmission Date: 20140127
  Serious: Yes (Other)
  Sender: FDA-Public Use
  Company Number: 163-21880-12121414

PATIENT
  Sex: Female

DRUGS (9)
  1. REVLIMID [Suspect]
     Indication: PLASMA CELL MYELOMA
     Dosage: 10 MG, 21 IN 21 D, PO
     Route: 048
     Dates: start: 20120803, end: 2012
  2. BENAZEPRIL HCL (BENAZEPRIL HYDROCHLORIDE) [Concomitant]
  3. COUMADIN (WARFARIN SODIUM) [Concomitant]
  4. CYMBALTA (DULOXETINE HYDROCHLORIDE) [Concomitant]
  5. LYRICA (PREGABALIN) [Concomitant]
  6. METFORMIN HCL (METFORMIN HYDROCHLORIDE) [Concomitant]
  7. OXYCONTIN (OXYCODONE HYDROCHLORIDE) [Concomitant]
  8. TRIAMTERENE-HCTZ (DYAZIDE) [Concomitant]
  9. XANAX (ALPRAZOLAM) [Concomitant]

REACTIONS (1)
  - Plasma cell myeloma [None]
